FAERS Safety Report 6133215-5 (Version None)
Quarter: 2009Q1

REPORT INFORMATION
  Report Type: 
  Country: None (occurrence: None)
  Receive Date: 20090325
  Receipt Date: 20090325
  Transmission Date: 20090719
  Serious: No
  Sender: FDA-Public Use
  Company Number: None

PATIENT
  Age: 40 Year
  Sex: Female
  Weight: 48.0813 kg

DRUGS (1)
  1. LYRICA [Suspect]
     Indication: SYRINGOMYELIA
     Dosage: ONE TABLET PO
     Route: 048
     Dates: start: 20080910, end: 20080912

REACTIONS (5)
  - CONFUSIONAL STATE [None]
  - DECREASED ACTIVITY [None]
  - DIZZINESS [None]
  - FEELING ABNORMAL [None]
  - UNEVALUABLE EVENT [None]
